FAERS Safety Report 16538895 (Version 1)
Quarter: 2019Q3

REPORT INFORMATION
  Report Type: Spontaneous
  Country: SE (occurrence: SE)
  Receive Date: 20190708
  Receipt Date: 20190708
  Transmission Date: 20191004
  Serious: Yes (Other)
  Sender: FDA-Public Use
  Company Number: SE-BRISTOL-MYERS SQUIBB COMPANY-BMS-2019-064695

PATIENT
  Age: 70 Year
  Sex: Male

DRUGS (1)
  1. HYDREA [Suspect]
     Active Substance: HYDROXYUREA
     Indication: CHRONIC MYELOMONOCYTIC LEUKAEMIA
     Dosage: UNK
     Route: 048
     Dates: start: 20151214, end: 20181222

REACTIONS (2)
  - Enterocolitis haemorrhagic [Unknown]
  - Hepatitis [Unknown]

NARRATIVE: CASE EVENT DATE: 20181222
